FAERS Safety Report 7522496-9 (Version None)
Quarter: 2011Q2

REPORT INFORMATION
  Report Type: 
  Country: None (occurrence: None)
  Receive Date: 20110603
  Receipt Date: 20110526
  Transmission Date: 20111010
  Serious: Yes (Other)
  Sender: FDA-Public Use
  Company Number: CN-JNJFOC-20110411557

PATIENT
  Sex: Male

DRUGS (2)
  1. MICONAZOLE [Suspect]
     Route: 061
  2. MICONAZOLE [Suspect]
     Indication: TINEA PEDIS
     Route: 061
     Dates: start: 20110419, end: 20110419

REACTIONS (2)
  - PRODUCT COUNTERFEIT [None]
  - APPLICATION SITE SWELLING [None]
